FAERS Safety Report 18615331 (Version 5)
Quarter: 2021Q1

REPORT INFORMATION
  Report Type: Report from Study
  Country: US (occurrence: US)
  Receive Date: 20201215
  Receipt Date: 20210319
  Transmission Date: 20210419
  Serious: No
  Sender: FDA-Public Use
  Company Number: NVSC2020US332055

PATIENT
  Age: 59 Year
  Sex: Female

DRUGS (1)
  1. KESIMPTA [Suspect]
     Active Substance: OFATUMUMAB
     Indication: MULTIPLE SCLEROSIS
     Dosage: 20 MG, QW
     Route: 058
     Dates: start: 20201125

REACTIONS (21)
  - Sneezing [Recovering/Resolving]
  - Fatigue [Recovered/Resolved]
  - Sinus headache [Recovering/Resolving]
  - Feeling abnormal [Recovering/Resolving]
  - Nausea [Recovering/Resolving]
  - Ageusia [Recovering/Resolving]
  - Hyperhidrosis [Recovering/Resolving]
  - Injection site haemorrhage [Recovered/Resolved]
  - Headache [Recovering/Resolving]
  - Injection site bruising [Recovered/Resolved]
  - Nasal congestion [Recovering/Resolving]
  - Feeling cold [Recovering/Resolving]
  - Fatigue [Not Recovered/Not Resolved]
  - Cough [Recovering/Resolving]
  - Rhinorrhoea [Recovering/Resolving]
  - Hypoaesthesia oral [Recovering/Resolving]
  - Device issue [Unknown]
  - Influenza like illness [Recovering/Resolving]
  - Pain [Not Recovered/Not Resolved]
  - Feeling hot [Recovering/Resolving]
  - Paranasal sinus discomfort [Recovering/Resolving]

NARRATIVE: CASE EVENT DATE: 20201125
